FAERS Safety Report 21176081 (Version 1)
Quarter: 2022Q3

REPORT INFORMATION
  Report Type: Spontaneous
  Country: US (occurrence: US)
  Receive Date: 20220805
  Receipt Date: 20220805
  Transmission Date: 20221027
  Serious: Yes (Other)
  Sender: FDA-Public Use
  Company Number: US-SA-SAC20220802001421

PATIENT
  Age: 56 Year
  Sex: Male

DRUGS (1)
  1. ZANTAC [Suspect]
     Active Substance: RANITIDINE HYDROCHLORIDE
     Indication: Erosive oesophagitis
     Dosage: 150 MG, QD
     Dates: start: 200401, end: 202004

REACTIONS (4)
  - Skin cancer [Unknown]
  - Colon cancer stage I [Unknown]
  - Bladder cancer [Unknown]
  - Renal cancer stage I [Unknown]

NARRATIVE: CASE EVENT DATE: 20090101
